FAERS Safety Report 20046657 (Version 1)
Quarter: 2021Q4

REPORT INFORMATION
  Report Type: Spontaneous
  Country: IN (occurrence: IN)
  Receive Date: 20211109
  Receipt Date: 20211109
  Transmission Date: 20220303
  Serious: Yes (Other)
  Sender: FDA-Public Use
  Company Number: IN-SUN PHARMACEUTICAL INDUSTRIES LTD-2021R1-316373

PATIENT
  Age: 38 Year
  Sex: Male

DRUGS (5)
  1. THALIDOMIDE [Suspect]
     Active Substance: THALIDOMIDE
     Indication: Myeloma cast nephropathy
     Dosage: 100 MILLIGRAM, DAILY
     Route: 065
  2. DOXORUBICIN [Suspect]
     Active Substance: DOXORUBICIN
     Indication: Myeloma cast nephropathy
     Dosage: 9 MILLIGRAM/SQ. METER, DAILY (4 CYCLES)
     Route: 042
  3. DEXAMETHASONE [Suspect]
     Active Substance: DEXAMETHASONE
     Indication: Myeloma cast nephropathy
     Dosage: 40 MILLIGRAM, DAILY (4 CYCLES)
     Route: 065
  4. VINCRISTINE [Suspect]
     Active Substance: VINCRISTINE
     Indication: Myeloma cast nephropathy
     Dosage: 0.4 MILLIGRAM, DAILY ( 4 CYCLES)
     Route: 065
  5. DEXAMETHASONE [Concomitant]
     Active Substance: DEXAMETHASONE
     Indication: Myeloma cast nephropathy
     Dosage: 40 MILLIGRAM, DAILY (4 DAYS EACH MONTH)
     Route: 065

REACTIONS (1)
  - Therapy partial responder [Unknown]
